FAERS Safety Report 6056460-6 (Version None)
Quarter: 2009Q1

REPORT INFORMATION
  Report Type: 
  Country: None (occurrence: None)
  Receive Date: 20090129
  Receipt Date: 20090121
  Transmission Date: 20090719
  Serious: No
  Sender: FDA-Public Use
  Company Number: US-BAYER-200910215BCC

PATIENT
  Age: 16 Year
  Sex: Male

DRUGS (3)
  1. ALEVE [Suspect]
     Indication: PHARYNGITIS STREPTOCOCCAL
     Dosage: UNIT DOSE: 220 MG
     Dates: start: 20090119
  2. ALEVE [Suspect]
     Dosage: UNIT DOSE: 220 MG
     Dates: start: 20090120
  3. AMOXICILLIN [Concomitant]

REACTIONS (2)
  - HEADACHE [None]
  - NAUSEA [None]
